FAERS Safety Report 24109205 (Version 1)
Quarter: 2024Q3

REPORT INFORMATION
  Report Type: Other
  Country: US (occurrence: US)
  Receive Date: 20240718
  Receipt Date: 20240718
  Transmission Date: 20241017
  Serious: Yes (Hospitalization)
  Sender: X GEN PHARM
  Company Number: US-XGen Pharmaceuticals DJB, Inc.-2159262

PATIENT
  Age: 52 Year
  Sex: Female

DRUGS (3)
  1. HYDRALAZINE HYDROCHLORIDE [Suspect]
     Active Substance: HYDRALAZINE HYDROCHLORIDE
  2. CLONIDINE [Concomitant]
     Active Substance: CLONIDINE
  3. FUROSEMIDE [Concomitant]
     Active Substance: FUROSEMIDE

REACTIONS (3)
  - Vasculitis [Recovered/Resolved with Sequelae]
  - Lupus nephritis [Recovered/Resolved with Sequelae]
  - Anti-neutrophil cytoplasmic antibody positive vasculitis [Recovered/Resolved with Sequelae]
